FAERS Safety Report 7593430-0 (Version None)
Quarter: 2011Q3

REPORT INFORMATION
  Report Type: 
  Country: None (occurrence: None)
  Receive Date: 20110706
  Receipt Date: 20110629
  Transmission Date: 20111222
  Serious: Yes (Other)
  Sender: FDA-Public Use
  Company Number: FR-MERCK-1106FRA00123

PATIENT
  Age: 83 Year
  Sex: Male

DRUGS (6)
  1. VINORELBINE TARTRATE [Suspect]
     Indication: LUNG NEOPLASM MALIGNANT
     Route: 042
  2. EMEND [Suspect]
     Route: 048
  3. VINORELBINE TARTRATE [Suspect]
     Route: 042
  4. METHYLPREDNISOLONE [Suspect]
     Route: 042
  5. CISPLATIN [Suspect]
     Indication: LUNG NEOPLASM MALIGNANT
     Route: 042
  6. ONDANSERTRON HYDROCHLORIDE [Suspect]
     Route: 042

REACTIONS (2)
  - PAPILLOEDEMA [None]
  - VISUAL ACUITY REDUCED [None]
